FAERS Safety Report 13237186 (Version 2)
Quarter: 2017Q2

REPORT INFORMATION
  Report Type: Spontaneous
  Country: US (occurrence: US)
  Receive Date: 20170215
  Receipt Date: 20170509
  Transmission Date: 20170830
  Serious: No
  Sender: FDA-Public Use
  Company Number: US-TEVA-727471ACC

PATIENT
  Sex: Female

DRUGS (17)
  1. LIPITOR [Concomitant]
     Active Substance: ATORVASTATIN CALCIUM
  2. CALCIUM [Concomitant]
     Active Substance: CALCIUM
  3. TOFRANIL [Concomitant]
     Active Substance: IMIPRAMINE HYDROCHLORIDE
  4. BACLOFEN. [Concomitant]
     Active Substance: BACLOFEN
  5. BRINTELLIX [Concomitant]
     Active Substance: VORTIOXETINE HYDROBROMIDE
  6. VISTARIL [Concomitant]
     Active Substance: HYDROXYZINE PAMOATE
  7. IMITREX [Concomitant]
     Active Substance: SUMATRIPTAN SUCCINATE
  8. SYMBICORT [Concomitant]
     Active Substance: BUDESONIDE\FORMOTEROL FUMARATE DIHYDRATE
  9. COPAXONE [Suspect]
     Active Substance: GLATIRAMER ACETATE
  10. VITAMIN D [Concomitant]
     Active Substance: CHOLECALCIFEROL
  11. PRILOSEC [Concomitant]
     Active Substance: OMEPRAZOLE MAGNESIUM
  12. KLONOPIN [Concomitant]
     Active Substance: CLONAZEPAM
  13. AMBIEN [Concomitant]
     Active Substance: ZOLPIDEM TARTRATE
  14. FIORICET [Concomitant]
     Active Substance: ACETAMINOPHEN\BUTALBITAL\CAFFEINE
  15. LAMICTAL [Concomitant]
     Active Substance: LAMOTRIGINE
  16. CYMBALTA [Concomitant]
     Active Substance: DULOXETINE HYDROCHLORIDE
  17. LATUDA [Concomitant]
     Active Substance: LURASIDONE HYDROCHLORIDE

REACTIONS (1)
  - Weight increased [Not Recovered/Not Resolved]

NARRATIVE: CASE EVENT DATE: 201602
